FAERS Safety Report 16071043 (Version 1)
Quarter: 2019Q1

REPORT INFORMATION
  Report Type: Spontaneous
  Country: AU (occurrence: AU)
  Receive Date: 20190314
  Receipt Date: 20190314
  Transmission Date: 20190418
  Serious: Yes (Other)
  Sender: FDA-Public Use
  Company Number: AU-ROCHE-2277218

PATIENT
  Age: 48 Year
  Sex: Male

DRUGS (2)
  1. COTELLIC [Suspect]
     Active Substance: COBIMETINIB
     Indication: MALIGNANT MELANOMA STAGE IV
     Route: 065
  2. ZELBORAF [Suspect]
     Active Substance: VEMURAFENIB
     Indication: MALIGNANT MELANOMA STAGE IV
     Route: 065

REACTIONS (7)
  - Gout [Unknown]
  - Pulmonary fibrosis [Unknown]
  - Toothache [Unknown]
  - Emotional distress [Unknown]
  - Blister [Unknown]
  - Jaw fracture [Unknown]
  - Impaired healing [Unknown]
